FAERS Safety Report 23173862 (Version 1)
Quarter: 2023Q4

REPORT INFORMATION
  Report Type: Spontaneous
  Country: KR (occurrence: KR)
  Receive Date: 20231111
  Receipt Date: 20231111
  Transmission Date: 20240110
  Serious: Yes (Hospitalization)
  Sender: FDA-Public Use
  Company Number: KR-SA-SAC20231109000221

PATIENT
  Age: 54 Year
  Sex: Female

DRUGS (2)
  1. CLOPIDOGREL BISULFATE [Suspect]
     Active Substance: CLOPIDOGREL BISULFATE
     Indication: Chronic kidney disease
     Dosage: 1 DF
     Route: 048
     Dates: start: 20180627
  2. ASPIRIN [Suspect]
     Active Substance: ASPIRIN
     Indication: Chronic kidney disease
     Dosage: 1 DF
     Route: 065
     Dates: start: 20180627

REACTIONS (4)
  - Eosinophilia [Recovering/Resolving]
  - Rash [Recovering/Resolving]
  - Pruritus [Recovering/Resolving]
  - Pyrexia [Recovering/Resolving]

NARRATIVE: CASE EVENT DATE: 20180725
